FAERS Safety Report 5094526-8 (Version None)
Quarter: 2006Q3

REPORT INFORMATION
  Report Type: 
  Country: None (occurrence: None)
  Receive Date: 20060831
  Receipt Date: 20060821
  Transmission Date: 20061208
  Serious: Yes (Hospitalization)
  Sender: FDA-Public Use
  Company Number: FR-MERCK-0608USA06312

PATIENT
  Age: 91 Year
  Sex: Male

DRUGS (12)
  1. MODURETIC 5-50 [Suspect]
     Route: 048
  2. LANZOR [Suspect]
     Route: 065
  3. TORENTAL [Concomitant]
     Route: 065
  4. ASPIRIN [Concomitant]
     Route: 065
  5. AMLODIPINE BESYLATE [Concomitant]
     Route: 065
  6. PLAVIX [Concomitant]
     Route: 065
  7. DIFFU-K [Concomitant]
     Route: 065
  8. NOOTROPYL [Concomitant]
     Route: 065
  9. FLUVASTATIN SODIUM [Concomitant]
     Route: 065
  10. PRIMALAN [Concomitant]
     Route: 065
  11. POLYETHYLENE GLYCOL [Concomitant]
     Route: 065
  12. DOXAZOSIN MESYLATE [Concomitant]
     Route: 065

REACTIONS (7)
  - ANURIA [None]
  - ASCITES [None]
  - BUNDLE BRANCH BLOCK LEFT [None]
  - HYPONATRAEMIA [None]
  - NEOPLASM PROSTATE [None]
  - OEDEMA PERIPHERAL [None]
  - ORTHOPNOEA [None]
